FAERS Safety Report 7507321-4 (Version None)
Quarter: 2011Q2

REPORT INFORMATION
  Report Type: 
  Country: None (occurrence: None)
  Receive Date: 20110526
  Receipt Date: 20110511
  Transmission Date: 20111010
  Serious: Yes (Hospitalization, Other)
  Sender: FDA-Public Use
  Company Number: US-BIOGENIDEC-2011BI010181

PATIENT
  Age: 44 Year
  Sex: Female

DRUGS (2)
  1. TYSABRI [Suspect]
     Indication: MULTIPLE SCLEROSIS
     Route: 042
     Dates: start: 20100921, end: 20110111
  2. NEUROPATHIC PAIN MEDS (NOS) [Concomitant]
     Indication: NEURALGIA
     Dates: end: 20110101

REACTIONS (6)
  - PROGRESSIVE MULTIFOCAL LEUKOENCEPHALOPATHY [None]
  - CELLULITIS [None]
  - ASTHENIA [None]
  - JOINT ABSCESS [None]
  - HEADACHE [None]
  - MENTAL DISORDER [None]
